FAERS Safety Report 21036154 (Version 1)
Quarter: 2022Q3

REPORT INFORMATION
  Report Type: Spontaneous
  Country: US (occurrence: US)
  Receive Date: 20220701
  Receipt Date: 20220701
  Transmission Date: 20221026
  Serious: No
  Sender: FDA-Public Use
  Company Number: US-THERAPEUTICSMD-2021TMD01811

PATIENT
  Sex: Female
  Weight: 66.667 kg

DRUGS (7)
  1. IMVEXXY [Suspect]
     Active Substance: ESTRADIOL
     Indication: Atrophic vulvovaginitis
     Dosage: 10 ?G, 1X/DAY
     Route: 067
     Dates: start: 202009, end: 2020
  2. IMVEXXY [Suspect]
     Active Substance: ESTRADIOL
     Indication: Vulvovaginal pruritus
     Dosage: 10 ?G, 2X/WEEK
     Route: 067
     Dates: start: 2020, end: 202105
  3. BIOTIN [Concomitant]
     Active Substance: BIOTIN
  4. ESTRADIOL TRANSDERMAL SYSTEM [Concomitant]
     Active Substance: ESTRADIOL
  5. LISINOPRIL [Concomitant]
     Active Substance: LISINOPRIL
  6. VITAMIN D [Concomitant]
     Active Substance: VITAMIN D NOS
  7. VITAMINS [Concomitant]
     Active Substance: VITAMINS

REACTIONS (3)
  - Psoriasis [Recovering/Resolving]
  - Pruritus [Recovering/Resolving]
  - Vaginal discharge [Recovering/Resolving]
